FAERS Safety Report 9880556 (Version 2)
Quarter: 2014Q2

REPORT INFORMATION
  Report Type: Spontaneous
  Country: FR (occurrence: FR)
  Receive Date: 20140207
  Receipt Date: 20140605
  Transmission Date: 20141212
  Serious: Yes (Other)
  Sender: FDA-Public Use
  Company Number: FR-JNJFOC-20140118762

PATIENT
  Sex: 0
  Weight: 2.8 kg

DRUGS (2)
  1. RISPERDAL [Suspect]
     Indication: BIPOLAR DISORDER
     Dosage: MOTHER DOSING
     Route: 064
  2. ATARAX [Suspect]
     Indication: PRODUCT USED FOR UNKNOWN INDICATION
     Dosage: MOTHER DOSING
     Route: 064

REACTIONS (2)
  - Hypocalcaemia [Recovered/Resolved]
  - Foetal exposure during pregnancy [Recovered/Resolved]
